FAERS Safety Report 7960426-6 (Version None)
Quarter: 2011Q4

REPORT INFORMATION
  Report Type: 
  Country: None (occurrence: None)
  Receive Date: 20111206
  Receipt Date: 20111129
  Transmission Date: 20120403
  Serious: Yes (Death, Other)
  Sender: FDA-Public Use
  Company Number: PHHY2011IT105375

PATIENT
  Age: 51 Year
  Sex: Male

DRUGS (4)
  1. METHYLPREDNISOLONE [Suspect]
     Indication: LIVER TRANSPLANT
     Dosage: 500 MG, UNK
     Route: 042
  2. BASILIXIMAB [Suspect]
     Indication: LIVER TRANSPLANT
     Dosage: 2 MG, UNK
     Route: 042
  3. TACROLIMUS [Suspect]
     Indication: LIVER TRANSPLANT
     Dosage: UNK UKN, UNK
  4. PREDNISONE TAB [Suspect]
     Indication: LIVER TRANSPLANT
     Dosage: 25 MG, UNK

REACTIONS (15)
  - LIVER DISORDER [None]
  - DECREASED APPETITE [None]
  - HUMAN HERPESVIRUS 8 INFECTION [None]
  - ASCITES [None]
  - NAUSEA [None]
  - PLEURAL EFFUSION [None]
  - PERICARDIAL EFFUSION [None]
  - MULTI-ORGAN FAILURE [None]
  - CASTLEMAN'S DISEASE [None]
  - PYREXIA [None]
  - DEHYDRATION [None]
  - LYMPHADENOPATHY [None]
  - BIOPSY LIVER ABNORMAL [None]
  - RENAL FAILURE [None]
  - LIVER FUNCTION TEST ABNORMAL [None]
